FAERS Safety Report 5475389-5 (Version None)
Quarter: 2007Q4

REPORT INFORMATION
  Report Type: 
  Country: None (occurrence: None)
  Receive Date: 20071003
  Receipt Date: 20070926
  Transmission Date: 20080405
  Serious: Yes (Other)
  Sender: FDA-Public Use
  Company Number: PHBS2007BR04591

PATIENT
  Age: 63 Year
  Sex: Male

DRUGS (12)
  1. ZOMETA [Suspect]
     Indication: METASTASES TO BONE
     Dosage: 4 MG, QMO
     Route: 042
     Dates: start: 20060301
  2. CASODEX [Concomitant]
     Dosage: ^1X/DLA^
     Route: 048
     Dates: start: 20061201, end: 20070701
  3. ZOLADEX [Concomitant]
     Dosage: 3.6 MG, QMO
     Route: 058
     Dates: start: 20061201, end: 20070301
  4. AMIODARONE [Concomitant]
  5. LUPRON [Concomitant]
     Dosage: 3.75 MG, QMO
     Route: 058
     Dates: start: 20010101, end: 20050101
  6. DESTILBENOL [Concomitant]
     Dosage: 2 MG, QD
     Route: 048
     Dates: start: 20050101, end: 20060101
  7. IRON [Concomitant]
     Dosage: UNK, QW
     Route: 042
  8. HEMAX [Concomitant]
     Dosage: 4000 IU, QW3
     Route: 058
  9. ANCORON [Concomitant]
     Dosage: 200 MG, QD
  10. RENAGEL [Concomitant]
     Dosage: 3 TABS/D
  11. PIOGLITAZONE [Concomitant]
     Dosage: 15MG/D
     Route: 048
  12. CITONEURIN [Concomitant]

REACTIONS (7)
  - COMPUTERISED TOMOGRAM [None]
  - GINGIVAL CYST [None]
  - ORAL INFECTION [None]
  - OSTEONECROSIS [None]
  - PERIODONTAL DISEASE [None]
  - PHYSICAL EXAMINATION [None]
  - TOOTH EXTRACTION [None]
